FAERS Safety Report 9013685 (Version 2)
Quarter: 2013Q1

REPORT INFORMATION
  Report Type: Spontaneous
  Country: US (occurrence: US)
  Receive Date: 20130115
  Receipt Date: 20130117
  Transmission Date: 20140127
  Serious: Yes (Hospitalization)
  Sender: FDA-Public Use
  Company Number: PHEH2013US001248

PATIENT
  Age: 61 Year
  Sex: Female
  Weight: 71.66 kg

DRUGS (1)
  1. RECLAST [Suspect]
     Dosage: UNK ONCE YEARLY
     Route: 042

REACTIONS (1)
  - Episcleritis [Unknown]
